FAERS Safety Report 6343624-7 (Version None)
Quarter: 2009Q3

REPORT INFORMATION
  Report Type: 
  Country: None (occurrence: None)
  Receive Date: 20090908
  Receipt Date: 20090902
  Transmission Date: 20100115
  Serious: Yes (Hospitalization)
  Sender: FDA-Public Use
  Company Number: FR-AVENTIS-200913273FR

PATIENT
  Age: 75 Year
  Sex: Female
  Weight: 100 kg

DRUGS (5)
  1. LASILIX                            /00032601/ [Suspect]
     Indication: DRUG USE FOR UNKNOWN INDICATION
     Route: 048
     Dates: start: 20090727, end: 20090807
  2. TIENAM [Suspect]
     Indication: DRUG USE FOR UNKNOWN INDICATION
     Route: 042
     Dates: start: 20090721, end: 20090806
  3. VANCOMYCIN [Suspect]
     Indication: DRUG USE FOR UNKNOWN INDICATION
     Route: 042
     Dates: start: 20090721, end: 20090805
  4. PEVARYL                            /00418502/ [Suspect]
     Indication: DRUG USE FOR UNKNOWN INDICATION
     Route: 003
     Dates: start: 20090722, end: 20090813
  5. TRIFLUCAN [Suspect]
     Indication: CANDIDIASIS
     Route: 048
     Dates: start: 20090731, end: 20090806

REACTIONS (1)
  - BONE MARROW FAILURE [None]
